FAERS Safety Report 4468203-8 (Version None)
Quarter: 2004Q4

REPORT INFORMATION
  Report Type: 
  Country: None (occurrence: None)
  Receive Date: 20041004
  Receipt Date: 20040920
  Transmission Date: 20050328
  Serious: Yes (Hospitalization)
  Sender: FDA-Public Use
  Company Number: 2004058300

PATIENT
  Age: 72 Year
  Sex: Male
  Weight: 86 kg

DRUGS (12)
  1. SORTIS (ATORVASTATIN) [Suspect]
     Indication: ILL-DEFINED DISORDER
     Dosage: 20 MG (20 MG, 1 IN 1 D), ORAL
     Route: 048
     Dates: start: 20000530, end: 20040705
  2. ASPIRIN [Concomitant]
  3. MOLSIDOMINE (MOLSIDOMINE) [Concomitant]
  4. METOPROLOL TARTRATE [Concomitant]
  5. LISINOPRIL [Concomitant]
  6. LEVOTHYROXINE SODIUM [Concomitant]
  7. ALLOPURINOL [Concomitant]
  8. MADOPAR (BENSERAZIDE HYDROCHLORIDE, LEVODOPA) [Concomitant]
  9. AMANTADINE HCL [Concomitant]
  10. OMEPRAZOLE [Concomitant]
  11. CAPTOPRIL [Concomitant]
  12. METOPROLOL SUCCINATE [Concomitant]

REACTIONS (11)
  - ALANINE AMINOTRANSFERASE ABNORMAL [None]
  - ALANINE AMINOTRANSFERASE INCREASED [None]
  - ASPARTATE AMINOTRANSFERASE INCREASED [None]
  - BLOOD ALBUMIN INCREASED [None]
  - BLOOD LACTATE DEHYDROGENASE INCREASED [None]
  - MUSCLE ATROPHY [None]
  - MUSCLE NECROSIS [None]
  - MYALGIA [None]
  - MYOSITIS [None]
  - PAIN IN EXTREMITY [None]
  - POLYNEUROPATHY [None]
